FAERS Safety Report 23662748 (Version 2)
Quarter: 2025Q2

REPORT INFORMATION
  Report Type: Report from Study
  Country: CA (occurrence: CA)
  Receive Date: 20240322
  Receipt Date: 20250519
  Transmission Date: 20250716
  Serious: Yes (Other)
  Sender: TAKEDA
  Company Number: CA-TAKEDA-2023TUS013499

PATIENT
  Age: 45 Year
  Sex: Female

DRUGS (8)
  1. VEDOLIZUMAB [Suspect]
     Active Substance: VEDOLIZUMAB
     Indication: Colitis ulcerative
  2. VEDOLIZUMAB [Suspect]
     Active Substance: VEDOLIZUMAB
     Dosage: 300 MILLIGRAM, Q6WEEKS
     Dates: start: 20221229
  3. VEDOLIZUMAB [Suspect]
     Active Substance: VEDOLIZUMAB
     Dosage: 300 MILLIGRAM, Q6WEEKS
  4. VEDOLIZUMAB [Suspect]
     Active Substance: VEDOLIZUMAB
     Dosage: 300 MILLIGRAM, Q6WEEKS
  5. VEDOLIZUMAB [Suspect]
     Active Substance: VEDOLIZUMAB
     Dosage: 300 MILLIGRAM, Q6WEEKS
  6. PREDNISONE [Concomitant]
     Active Substance: PREDNISONE
  7. OZEMPIC [Concomitant]
     Active Substance: SEMAGLUTIDE
  8. MOUNJARO [Concomitant]
     Active Substance: TIRZEPATIDE

REACTIONS (8)
  - Lower respiratory tract infection [Unknown]
  - Illness [Recovered/Resolved]
  - Pharyngitis streptococcal [Unknown]
  - Fungal infection [Unknown]
  - Asthenia [Unknown]
  - COVID-19 [Recovered/Resolved]
  - Ear infection [Unknown]
  - Pyrexia [Unknown]

NARRATIVE: CASE EVENT DATE: 20230201
